FAERS Safety Report 7776066-8 (Version None)
Quarter: 2011Q3

REPORT INFORMATION
  Report Type: 
  Country: None (occurrence: None)
  Receive Date: 20110924
  Receipt Date: 20110920
  Transmission Date: 20111222
  Serious: Yes (Other)
  Sender: FDA-Public Use
  Company Number: CA-ABBOTT-11P-028-0849557-00

PATIENT
  Sex: Female
  Weight: 87.1 kg

DRUGS (1)
  1. HUMIRA [Suspect]
     Indication: PSORIASIS
     Route: 058
     Dates: start: 20101004

REACTIONS (11)
  - ANASTOMOTIC LEAK [None]
  - DIVERTICULUM [None]
  - FISTULA DISCHARGE [None]
  - INTESTINAL RESECTION [None]
  - ASTHENIA [None]
  - CYSTITIS [None]
  - FEMALE GENITAL TRACT FISTULA [None]
  - INCISION SITE INFECTION [None]
  - DIVERTICULITIS [None]
  - GASTROINTESTINAL PAIN [None]
  - IMPAIRED HEALING [None]
